FAERS Safety Report 11251096 (Version 1)
Quarter: 2015Q3

REPORT INFORMATION
  Report Type: Spontaneous
  Country: US (occurrence: US)
  Receive Date: 20150708
  Receipt Date: 20150708
  Transmission Date: 20151125
  Serious: Yes (Other)
  Sender: FDA-Public Use
  Company Number: US-ELI_LILLY_AND_COMPANY-US201108006668

PATIENT
  Age: 70 Year
  Sex: Female

DRUGS (1)
  1. XIGRIS [Suspect]
     Active Substance: DROTRECOGIN ALFA (ACTIVATED)
     Indication: SEPTIC SHOCK
     Dosage: 24 ?G/KG, PER HR
     Dates: start: 20110812, end: 20110812

REACTIONS (1)
  - Incision site haemorrhage [Unknown]
